FAERS Safety Report 7486321-7 (Version None)
Quarter: 2011Q2

REPORT INFORMATION
  Report Type: 
  Country: None (occurrence: None)
  Receive Date: 20110516
  Receipt Date: 20110516
  Transmission Date: 20111010
  Serious: No
  Sender: FDA-Public Use
  Company Number: None

PATIENT
  Age: 72 Year
  Sex: Male
  Weight: 117.2 kg

DRUGS (1)
  1. KETOCONAZOLE [Suspect]
     Dosage: 400 MG TID PO
     Route: 048
     Dates: start: 20110504, end: 20110511

REACTIONS (2)
  - MUSCULAR WEAKNESS [None]
  - MYOPATHY [None]
